FAERS Safety Report 5889791-0 (Version None)
Quarter: 2008Q3

REPORT INFORMATION
  Report Type: 
  Country: None (occurrence: None)
  Receive Date: 20080919
  Receipt Date: 20080916
  Transmission Date: 20090109
  Serious: Yes (Other)
  Sender: FDA-Public Use
  Company Number: FR-AVENTIS-200813253FR

PATIENT
  Age: 40 Year
  Sex: Female

DRUGS (9)
  1. RIFADIN [Suspect]
     Route: 048
  2. RIMIFON [Suspect]
  3. SEROPRAM [Suspect]
     Indication: DRUG USE FOR UNKNOWN INDICATION
     Route: 048
  4. LEVOTHYROX [Suspect]
     Route: 048
  5. LEVOTHYROX [Suspect]
     Indication: HYPOTHYROIDISM
     Route: 048
  6. LOXEN [Suspect]
     Indication: DRUG USE FOR UNKNOWN INDICATION
     Route: 048
  7. LOVENOX [Concomitant]
     Route: 058
     Dates: start: 20070911, end: 20071005
  8. PREVISCAN                          /00789001/ [Concomitant]
     Indication: PHLEBITIS
     Route: 048
     Dates: end: 20070911
  9. FOLIC ACID [Concomitant]
     Indication: DRUG USE FOR UNKNOWN INDICATION
     Route: 048

REACTIONS (3)
  - ABORTION SPONTANEOUS [None]
  - DRUG EXPOSURE DURING PREGNANCY [None]
  - METRORRHAGIA [None]
